FAERS Safety Report 20652395 (Version 1)
Quarter: 2022Q1

REPORT INFORMATION
  Report Type: Report from Study
  Country: AR (occurrence: AR)
  Receive Date: 20220330
  Receipt Date: 20220330
  Transmission Date: 20220423
  Serious: Yes (Death, Hospitalization, Other)
  Sender: FDA-Public Use
  Company Number: AR-ABBVIE-22K-007-4335866-00

PATIENT
  Age: 75 Year
  Sex: Female

DRUGS (1)
  1. HUMIRA [Suspect]
     Active Substance: ADALIMUMAB
     Indication: Rheumatoid arthritis
     Route: 058
     Dates: start: 20210329

REACTIONS (5)
  - Cardio-respiratory arrest [Fatal]
  - Haemorrhagic stroke [Unknown]
  - Pulmonary haemorrhage [Unknown]
  - Injury [Unknown]
  - Hypertension [Unknown]

NARRATIVE: CASE EVENT DATE: 20220321
